FAERS Safety Report 23447680 (Version 1)
Quarter: 2024Q1

REPORT INFORMATION
  Report Type: Spontaneous
  Country: US (occurrence: US)
  Receive Date: 20240126
  Receipt Date: 20240126
  Transmission Date: 20240410
  Serious: No
  Sender: FDA-Public Use
  Company Number: US-PFIZER INC-202300253676

PATIENT
  Age: 59 Year
  Sex: Female
  Weight: 91.63 kg

DRUGS (2)
  1. OXBRYTA [Suspect]
     Active Substance: VOXELOTOR
     Indication: Sickle cell disease
     Dosage: 3 TABLETS 500MG, ONE TIME A DAY, ORALLY
     Route: 048
     Dates: start: 202003
  2. CLONIDINE [Concomitant]
     Active Substance: CLONIDINE
     Dosage: UNK, IF BLOOD PRESSURE GOES UP
     Route: 048

REACTIONS (1)
  - Alopecia [Unknown]
